FAERS Safety Report 8239379-1 (Version None)
Quarter: 2012Q1

REPORT INFORMATION
  Report Type: 
  Country: None (occurrence: None)
  Receive Date: 20120326
  Receipt Date: 20120313
  Transmission Date: 20120608
  Serious: Yes (Other)
  Sender: FDA-Public Use
  Company Number: JP-2012-14218

PATIENT
  Age: 68 Year
  Sex: Male

DRUGS (3)
  1. JUVELA (TOCOPHERYL ACETATE) [Concomitant]
  2. PLETAL [Suspect]
     Dosage: ORAL
     Route: 048
  3. KETOPROFEN [Concomitant]

REACTIONS (1)
  - BLINDNESS TRANSIENT [None]
